FAERS Safety Report 7042382-0 (Version None)
Quarter: 2010Q4

REPORT INFORMATION
  Report Type: 
  Country: None (occurrence: None)
  Receive Date: 20101013
  Receipt Date: 20100330
  Transmission Date: 20110411
  Serious: No
  Sender: FDA-Public Use
  Company Number: US-ASTRAZENECA-2010SE11995

PATIENT
  Sex: Female

DRUGS (7)
  1. SYMBICORT [Suspect]
     Indication: ASTHMA
     Dosage: 160/4.5 MICROGRAMS
     Route: 055
     Dates: start: 20080913
  2. THYROID [Concomitant]
  3. ZOCOR [Concomitant]
  4. FLONASE [Concomitant]
  5. ALLEGRA [Concomitant]
  6. ALLOPURINOL [Concomitant]
  7. COUMADIN [Concomitant]

REACTIONS (6)
  - CATARACT [None]
  - DRY MOUTH [None]
  - DRY THROAT [None]
  - DYSPHONIA [None]
  - GLAUCOMA [None]
  - VIRAL INFECTION [None]
